FAERS Safety Report 21898633 (Version 1)
Quarter: 2023Q1

REPORT INFORMATION
  Report Type: Spontaneous
  Country: US (occurrence: None)
  Receive Date: 20230121
  Receipt Date: 20230121
  Transmission Date: 20230417
  Serious: Yes (Death)
  Sender: FDA-Public Use
  Company Number: None

PATIENT
  Age: 79 Year
  Sex: Female
  Weight: 60.75 kg

DRUGS (18)
  1. ZYLOPRIM [Suspect]
     Active Substance: ALLOPURINOL
     Indication: Product used for unknown indication
     Dates: start: 20221218, end: 20230110
  2. ALAFEN (BIKTARVY) [Concomitant]
  3. FLEET (BISACODYL) [Concomitant]
     Active Substance: BISACODYL
  4. VITAMIN D3 [Concomitant]
     Active Substance: CHOLECALCIFEROL
  5. DEPAKOTE [Concomitant]
     Active Substance: DIVALPROEX SODIUM
  6. TIROSINT [Concomitant]
     Active Substance: LEVOTHYROXINE SODIUM
  7. MILK OF MAGNESIA [Concomitant]
     Active Substance: MAGNESIUM HYDROXIDE
  8. MELATONIN [Concomitant]
     Active Substance: MELATONIN
  9. metoprolol succinate (TOPROL XL) [Concomitant]
  10. nystatin (MYCOSTATIN) [Concomitant]
  11. senna-docusate (PERI-COLACE) [Concomitant]
  12. SODIUM BICARBONATE [Concomitant]
     Active Substance: SODIUM BICARBONATE
  13. TYLENOL [Concomitant]
     Active Substance: ACETAMINOPHEN
  14. ZYLOPRIM [Concomitant]
     Active Substance: ALLOPURINOL
  15. NORVASC [Concomitant]
     Active Substance: AMLODIPINE BESYLATE
  16. ELIQUIS [Concomitant]
     Active Substance: APIXABAN
  17. LIPITOR [Concomitant]
     Active Substance: ATORVASTATIN CALCIUM
  18. DEVICE [Concomitant]
     Active Substance: DEVICE

REACTIONS (4)
  - Urinary tract infection [None]
  - Anaemia [None]
  - Toxic epidermal necrolysis [None]
  - Stevens-Johnson syndrome [None]

NARRATIVE: CASE EVENT DATE: 20230102
